FAERS Safety Report 24232366 (Version 6)
Quarter: 2024Q4

REPORT INFORMATION
  Report Type: Spontaneous
  Country: CL (occurrence: CL)
  Receive Date: 20240821
  Receipt Date: 20241202
  Transmission Date: 20250115
  Serious: Yes (Hospitalization, Other)
  Sender: PFIZER
  Company Number: CL-PFIZER INC-PV202400107913

PATIENT
  Age: 68 Year
  Sex: Male
  Weight: 102 kg

DRUGS (13)
  1. LORBRENA [Suspect]
     Active Substance: LORLATINIB
     Indication: Lung neoplasm malignant
     Dosage: 100 MG, CYCLIC
     Dates: start: 20230119
  2. FENOTEROL HYDROBROMIDE\IPRATROPIUM BROMIDE [Concomitant]
     Active Substance: FENOTEROL HYDROBROMIDE\IPRATROPIUM BROMIDE
     Dosage: UNK
  3. BLOX [Concomitant]
     Dosage: 8 MG, DAILY (IF SYSTOLIC PRESSURE } 140)
  4. D VIDA [Concomitant]
     Dosage: 800 IU, DAILY
  5. ELTOVEN [Concomitant]
     Dosage: 2 MG, DAILY
  6. ESOMEPRAZOLE [Concomitant]
     Active Substance: ESOMEPRAZOLE
     Dosage: 20 MG, DAILY
  7. EUTHYROX [Concomitant]
     Active Substance: LEVOTHYROXINE SODIUM
     Indication: Hormone level abnormal
     Dosage: 100 UG, DAILY
  8. GEMFIBROZIL [Concomitant]
     Active Substance: GEMFIBROZIL
     Dosage: 600 MG, DAILY
  9. GOTELY DUO [Concomitant]
     Dosage: UNK
  10. POLYETHYLENE GLYCOL 3350 [Concomitant]
     Active Substance: POLYETHYLENE GLYCOL 3350
     Dosage: UNK, 1X/DAY, 1 TABLESPOON DAILY
  11. ROSUVASTATIN [Concomitant]
     Active Substance: ROSUVASTATIN
     Indication: Hypertension
     Dosage: 20 MG, 1X/DAY
  12. SERTRALINE [Concomitant]
     Active Substance: SERTRALINE HYDROCHLORIDE
     Dosage: 50 MG, DAILY
  13. LYRICA [Concomitant]
     Active Substance: PREGABALIN
     Dosage: 40 MG, DAILY

REACTIONS (14)
  - Normal pressure hydrocephalus [Recovering/Resolving]
  - Altered state of consciousness [Not Recovered/Not Resolved]
  - Pneumonia [Unknown]
  - Brain radiation necrosis [Recovering/Resolving]
  - Confusional state [Recovered/Resolved]
  - Tracheobronchitis [Recovered/Resolved]
  - Bronchitis viral [Recovered/Resolved]
  - Acute respiratory failure [Recovered/Resolved]
  - Delirium [Recovered/Resolved]
  - Bronchitis [Recovered/Resolved]
  - Constipation [Recovered/Resolved]
  - Neoplasm recurrence [Recovering/Resolving]
  - Fall [Unknown]
  - Off label use [Unknown]

NARRATIVE: CASE EVENT DATE: 20230201
